FAERS Safety Report 12634309 (Version 1)
Quarter: 2016Q3

REPORT INFORMATION
  Report Type: Spontaneous
  Country: US (occurrence: US)
  Receive Date: 20160809
  Receipt Date: 20160809
  Transmission Date: 20161109
  Serious: Yes (Life-Threatening, Hospitalization, Other)
  Sender: FDA-Public Use
  Company Number: US-WEST-WARD PHARMACEUTICALS CORP.-2015-RO-01795RO

PATIENT
  Age: 40 Year
  Sex: Male

DRUGS (4)
  1. XANAX [Suspect]
     Active Substance: ALPRAZOLAM
     Indication: DEPRESSION
     Route: 065
     Dates: end: 20070813
  2. METHADONE [Suspect]
     Active Substance: METHADONE HYDROCHLORIDE
     Indication: PAIN
     Route: 065
     Dates: end: 20070813
  3. CHANTIX [Suspect]
     Active Substance: VARENICLINE TARTRATE
     Indication: SMOKING CESSATION THERAPY
     Route: 065
     Dates: end: 20070813
  4. LORTAB [Suspect]
     Active Substance: ACETAMINOPHEN\HYDROCODONE BITARTRATE
     Indication: PAIN
     Route: 065
     Dates: end: 20070813

REACTIONS (8)
  - Constipation [Recovered/Resolved]
  - Withdrawal syndrome [Recovered/Resolved]
  - Diarrhoea [Not Recovered/Not Resolved]
  - Fatigue [Unknown]
  - Homicide [Recovered/Resolved]
  - Weight increased [Unknown]
  - Suicidal ideation [Recovered/Resolved]
  - Depression [Recovered/Resolved]

NARRATIVE: CASE EVENT DATE: 20050115
